FAERS Safety Report 25892202 (Version 1)
Quarter: 2025Q4

REPORT INFORMATION
  Report Type: Spontaneous
  Country: EU (occurrence: EU)
  Receive Date: 20251007
  Receipt Date: 20251007
  Transmission Date: 20260118
  Serious: Yes (Hospitalization)
  Sender: TEVA
  Company Number: None

PATIENT
  Age: 90 Year
  Sex: Female

DRUGS (3)
  1. BISOPROLOL [Suspect]
     Active Substance: BISOPROLOL
     Indication: Atrial fibrillation
     Dosage: 5MG-0-2.5MG, BISOPROLOL (2328A)
     Route: 048
     Dates: start: 20241119
  2. AREMIS [Concomitant]
     Indication: Depression
     Dosage: 30 TABLETS
     Route: 048
     Dates: start: 20050218
  3. EDOXABAN TOSYLATE [Concomitant]
     Active Substance: EDOXABAN TOSYLATE
     Indication: Atrial fibrillation
     Dosage: 28 TABLETS
     Route: 048
     Dates: start: 20240116

REACTIONS (3)
  - Presyncope [Unknown]
  - Bradycardia [Unknown]
  - Hypotension [Unknown]

NARRATIVE: CASE EVENT DATE: 20250916
